FAERS Safety Report 6012257-4 (Version None)
Quarter: 2008Q4

REPORT INFORMATION
  Report Type: 
  Country: None (occurrence: None)
  Receive Date: 20081216
  Receipt Date: 20080123
  Transmission Date: 20090506
  Serious: Yes (Other)
  Sender: FDA-Public Use
  Company Number: US-WYE-H02269708

PATIENT
  Age: 34 Year
  Sex: Female
  Weight: 63.56 kg

DRUGS (1)
  1. EFFEXOR XR [Suspect]
     Indication: POSTPARTUM DEPRESSION
     Dosage: 37.5 MG 1X PER 1 DAY, ORAL
     Route: 048
     Dates: start: 20060101

REACTIONS (7)
  - AGITATION [None]
  - ANXIETY [None]
  - IRRITABILITY [None]
  - LIBIDO DECREASED [None]
  - NEGATIVISM [None]
  - PAIN IN EXTREMITY [None]
  - SUICIDAL IDEATION [None]
